FAERS Safety Report 7223769-X (Version None)
Quarter: 2011Q1

REPORT INFORMATION
  Report Type: 
  Country: None (occurrence: None)
  Receive Date: 20110112
  Receipt Date: 20101123
  Transmission Date: 20110831
  Serious: No
  Sender: FDA-Public Use
  Company Number: US-ALLERGAN-1015219US

PATIENT
  Age: 64 Year
  Sex: Female

DRUGS (4)
  1. SYSTANE [Concomitant]
  2. MURINE PLUS                        /00256502/ [Concomitant]
  3. RESTASIS [Suspect]
     Indication: DRY EYE
     Dosage: 2 GTT, BID
     Route: 047
     Dates: end: 20101205
  4. NAPHCON                            /00419601/ [Concomitant]

REACTIONS (2)
  - EYE PAIN [None]
  - RHINORRHOEA [None]
